FAERS Safety Report 12427681 (Version 1)
Quarter: 2016Q2

REPORT INFORMATION
  Report Type: Spontaneous
  Country: US (occurrence: None)
  Receive Date: 20160531
  Receipt Date: 20160531
  Transmission Date: 20160815
  Serious: Yes (Death)
  Sender: FDA-Public Use
  Company Number: None

PATIENT
  Age: 64 Year
  Sex: Male
  Weight: 76.4 kg

DRUGS (1)
  1. HARVONI [Suspect]
     Active Substance: LEDIPASVIR\SOFOSBUVIR
     Indication: CHRONIC HEPATITIS C
     Dosage: 1 TABLET DAILY BY MOUTH ??13-NOV-2016
     Route: 048

REACTIONS (3)
  - Pancreatic mass [None]
  - Hepatic cancer [None]
  - Drug dose omission [None]

NARRATIVE: CASE EVENT DATE: 20160415
